FAERS Safety Report 4585498-0 (Version None)
Quarter: 2005Q1

REPORT INFORMATION
  Report Type: 
  Country: None (occurrence: None)
  Receive Date: 20050214
  Receipt Date: 20050131
  Transmission Date: 20050727
  Serious: Yes (Hospitalization, Other)
  Sender: FDA-Public Use
  Company Number: 16384

PATIENT
  Age: 75 Year
  Sex: Male
  Weight: 64.8644 kg

DRUGS (1)
  1. ADRIAMYCIN PFS [Suspect]
     Indication: ANAEMIA OF MALIGNANT DISEASE
     Dosage: 90 MG, 1 IN 21 DAY/IV
     Route: 042

REACTIONS (1)
  - FEBRILE NEUTROPENIA [None]
